FAERS Safety Report 11222721 (Version 3)
Quarter: 2019Q2

REPORT INFORMATION
  Report Type: Spontaneous
  Country: US (occurrence: US)
  Receive Date: 20150626
  Receipt Date: 20190620
  Transmission Date: 20190711
  Serious: Yes (Other)
  Sender: FDA-Public Use
  Company Number: US-PFIZER INC-2015211519

PATIENT
  Age: 63 Year
  Sex: Female
  Weight: 71.2 kg

DRUGS (2)
  1. PREMARIN [Suspect]
     Active Substance: ESTROGENS, CONJUGATED
     Indication: HORMONE THERAPY
     Dosage: 0.625 MG, 2X/WEEK
  2. SKELAXIN [METAXALONE] [Concomitant]
     Indication: FIBROMYALGIA
     Dosage: 400 MG, AS NEEDED (800 MILLIGRAM TABLETS BY MOUTH AS NEEDED; CALLER USUALLY BREAKS THEM IN HALF)
     Route: 048

REACTIONS (19)
  - Urinary tract infection [Unknown]
  - Bladder disorder [Unknown]
  - Weight decreased [Unknown]
  - Fungal infection [Unknown]
  - Diabetes mellitus [Unknown]
  - Pollakiuria [Unknown]
  - Intentional product misuse [Unknown]
  - Rocky mountain spotted fever [Unknown]
  - Arthropathy [Unknown]
  - Breast disorder female [Unknown]
  - Dysuria [Unknown]
  - Muscle spasms [Unknown]
  - Arthritis [Unknown]
  - Hypertension [Unknown]
  - Ovarian cyst [Unknown]
  - Blood pressure decreased [Unknown]
  - Scoliosis [Unknown]
  - Malaise [Unknown]
  - Off label use [Unknown]
